FAERS Safety Report 17279338 (Version 4)
Quarter: 2020Q1

REPORT INFORMATION
  Report Type: Spontaneous
  Country: US (occurrence: US)
  Receive Date: 20200116
  Receipt Date: 20200319
  Transmission Date: 20200409
  Serious: No
  Sender: FDA-Public Use
  Company Number: US-009507513-2001USA005538

PATIENT
  Age: 25 Year
  Sex: Female
  Weight: 118.36 kg

DRUGS (2)
  1. NEXPLANON [Suspect]
     Active Substance: ETONOGESTREL
     Indication: CONTRACEPTION
     Dosage: 1 DOSAGE FORM, EVERY 3 YEARS
     Route: 059
     Dates: start: 201812, end: 20191218
  2. NEXPLANON [Suspect]
     Active Substance: ETONOGESTREL
     Dosage: 1 DOSAGE FORM, EVERY 3 YEARS
     Route: 059
     Dates: start: 20191218

REACTIONS (4)
  - No adverse event [Unknown]
  - Device expulsion [Unknown]
  - Complication associated with device [Unknown]
  - Discomfort [Unknown]

NARRATIVE: CASE EVENT DATE: 201912
